FAERS Safety Report 6172915-8 (Version None)
Quarter: 2009Q2

REPORT INFORMATION
  Report Type: 
  Country: None (occurrence: None)
  Receive Date: 20090430
  Receipt Date: 20090420
  Transmission Date: 20091009
  Serious: Yes (Other)
  Sender: FDA-Public Use
  Company Number: PHHY2009GB06498

PATIENT
  Sex: Male

DRUGS (5)
  1. EXELON [Suspect]
     Dosage: 4.6MG
     Route: 062
     Dates: start: 20090107, end: 20090129
  2. PROMAZINE HYDROCHLORIDE [Concomitant]
     Indication: SLEEP DISORDER
     Dosage: 50 MG, NOCTE
     Route: 048
  3. TRAZODONE HCL [Concomitant]
     Indication: SLEEP DISORDER
     Dosage: 50 MG, NOCTE
     Route: 048
  4. ADALAT [Concomitant]
     Dosage: 30 MG, UNK
     Route: 048
  5. ZOPICLONE [Concomitant]
     Dosage: 3.75 MG, PRN, NOCTE
     Route: 048

REACTIONS (5)
  - ABNORMAL BEHAVIOUR [None]
  - AGGRESSION [None]
  - AGITATION [None]
  - CONDITION AGGRAVATED [None]
  - IRRITABILITY [None]
